FAERS Safety Report 22222143 (Version 5)
Quarter: 2023Q2

REPORT INFORMATION
  Report Type: Spontaneous
  Country: US (occurrence: US)
  Receive Date: 20230418
  Receipt Date: 20230630
  Transmission Date: 20230721
  Serious: No
  Sender: FDA-Public Use
  Company Number: US-PFIZER INC-PV202300066926

PATIENT
  Age: 2 Year
  Sex: Female

DRUGS (3)
  1. GENOTROPIN [Suspect]
     Active Substance: SOMATROPIN
     Dosage: 0.4 MG, DAILY
     Dates: start: 202303
  2. GENOTROPIN [Suspect]
     Active Substance: SOMATROPIN
     Dosage: 0.5 MG
  3. GENOTROPIN [Suspect]
     Active Substance: SOMATROPIN
     Dosage: UP TO 5 MILLIGRAMS

REACTIONS (4)
  - Incorrect dose administered by device [Unknown]
  - Overdose [Unknown]
  - Device defective [Unknown]
  - Device leakage [Unknown]
